FAERS Safety Report 7843835-5 (Version None)
Quarter: 2011Q4

REPORT INFORMATION
  Report Type: 
  Country: None (occurrence: None)
  Receive Date: 20111025
  Receipt Date: 20111011
  Transmission Date: 20120403
  Serious: Yes (Hospitalization)
  Sender: FDA-Public Use
  Company Number: FR-CELGENEUS-056-50794-11093735

PATIENT
  Sex: Female

DRUGS (3)
  1. ATACAND [Concomitant]
     Dosage: 8 MILLIGRAM
     Route: 065
  2. LEVOTHYROXINE SODIUM [Concomitant]
     Route: 065
  3. VIDAZA [Suspect]
     Route: 065
     Dates: end: 20110913

REACTIONS (1)
  - PANCREATITIS [None]
